FAERS Safety Report 8404887-7 (Version None)
Quarter: 2012Q2

REPORT INFORMATION
  Report Type: 
  Country: None (occurrence: None)
  Receive Date: 20120601
  Receipt Date: 20110822
  Transmission Date: 20120825
  Serious: No
  Sender: FDA-Public Use
  Company Number: US-ASTRAZENECA-2011SE42377

PATIENT
  Age: 70 Year
  Sex: Female

DRUGS (1)
  1. ATACAND HCT [Suspect]
     Dosage: 32 MG DAILY
     Route: 048

REACTIONS (4)
  - HYPERTENSION [None]
  - BURSITIS [None]
  - FALL [None]
  - BACK INJURY [None]
